FAERS Safety Report 5827993-X (Version None)
Quarter: 2008Q3

REPORT INFORMATION
  Report Type: 
  Country: None (occurrence: None)
  Receive Date: 20080728
  Receipt Date: 20080711
  Transmission Date: 20090109
  Serious: Yes (Hospitalization)
  Sender: FDA-Public Use
  Company Number: US-1166709

PATIENT
  Age: 90 Year
  Sex: Female

DRUGS (4)
  1. ICAPS MULTIVITAMIN FORMULA TABLETS [Suspect]
     Dosage: (ORAL)
     Route: 048
     Dates: start: 20080623, end: 20080708
  2. SYNTHROID [Concomitant]
  3. MAXZIDE [Concomitant]
  4. ASPIRIN [Concomitant]

REACTIONS (3)
  - HAEMORRHOIDS [None]
  - PHARMACEUTICAL PRODUCT COMPLAINT [None]
  - RECTAL HAEMORRHAGE [None]
